FAERS Safety Report 10661122 (Version 1)
Quarter: 2014Q4

REPORT INFORMATION
  Report Type: Spontaneous
  Country: US (occurrence: None)
  Receive Date: 20141216
  Receipt Date: 20141216
  Transmission Date: 20150529
  Serious: Yes (Disabling)
  Sender: FDA-Public Use
  Company Number: None

PATIENT
  Age: 56 Year
  Sex: Female
  Weight: 62.14 kg

DRUGS (1)
  1. BIOTENE DRY MOUTH SPRAY [Suspect]
     Active Substance: CETYLPYRIDINIUM CHLORIDE
     Indication: DRY MOUTH

REACTIONS (5)
  - Throat irritation [None]
  - Exposure via inhalation [None]
  - Asthma [None]
  - Wrong technique in drug usage process [None]
  - Chest discomfort [None]

NARRATIVE: CASE EVENT DATE: 20141205
